FAERS Safety Report 13301769 (Version 3)
Quarter: 2018Q1

REPORT INFORMATION
  Report Type: Report from Study
  Country: DE (occurrence: DE)
  Receive Date: 20170307
  Receipt Date: 20180122
  Transmission Date: 20180508
  Serious: Yes (Hospitalization)
  Sender: FDA-Public Use
  Company Number: PHHY2017DE034429

PATIENT
  Sex: Female
  Weight: 62 kg

DRUGS (3)
  1. CANDESARTAN CILEXETIL. [Suspect]
     Active Substance: CANDESARTAN CILEXETIL
     Indication: HYPOTENSION
     Dosage: 16 MG, QD
     Route: 048
     Dates: start: 20161104, end: 20161110
  2. SALBUTAMOL [Concomitant]
     Active Substance: ALBUTEROL
     Indication: INFECTIOUS PLEURAL EFFUSION
     Dosage: UNK UNK, QD
     Route: 065
     Dates: start: 20141211
  3. TASIGNA [Suspect]
     Active Substance: NILOTINIB
     Indication: CHRONIC MYELOID LEUKAEMIA
     Dosage: 600 MG, QD
     Route: 048
     Dates: start: 20150218

REACTIONS (1)
  - Hypotension [Recovered/Resolved]

NARRATIVE: CASE EVENT DATE: 20161105
